FAERS Safety Report 6464502-9 (Version None)
Quarter: 2009Q4

REPORT INFORMATION
  Report Type: 
  Country: None (occurrence: None)
  Receive Date: 20091201
  Receipt Date: 20091127
  Transmission Date: 20100525
  Serious: Yes (Hospitalization)
  Sender: FDA-Public Use
  Company Number: IT-PFIZER INC-2009282776

PATIENT
  Age: 66 Year
  Sex: Male

DRUGS (6)
  1. TOTALIP [Suspect]
     Indication: DYSLIPIDAEMIA
     Dosage: 40 MG, 1X/DAY
     Route: 048
     Dates: start: 20090401, end: 20090930
  2. 5-ASA [Concomitant]
     Dosage: 100 MG, UNK
     Route: 048
  3. LEVOTHYROXINE [Concomitant]
     Dosage: 75 UG, UNK
     Route: 048
  4. CARDICOR [Concomitant]
     Dosage: UNK
     Route: 048
     Dates: start: 20090401
  5. VASERETIC [Concomitant]
     Dosage: 20 MG/12.5 MG, UNK
  6. ADALAT [Concomitant]
     Dosage: 30 MG, UNK
     Route: 048

REACTIONS (1)
  - ALVEOLITIS [None]
